FAERS Safety Report 17129700 (Version 3)
Quarter: 2021Q4

REPORT INFORMATION
  Report Type: Spontaneous
  Country: JP (occurrence: JP)
  Receive Date: 20191209
  Receipt Date: 20211004
  Transmission Date: 20220303
  Serious: Yes (Other)
  Sender: FDA-Public Use
  Company Number: NVSJ2019JP004853

PATIENT
  Age: 58 Year
  Sex: Male

DRUGS (5)
  1. CERTICAN [Suspect]
     Active Substance: EVEROLIMUS
     Indication: Liver transplant
     Dosage: 1 MG
     Route: 048
     Dates: end: 20180626
  2. CERTICAN [Suspect]
     Active Substance: EVEROLIMUS
     Indication: Prophylaxis against transplant rejection
  3. TACROLIMUS [Concomitant]
     Active Substance: TACROLIMUS
     Indication: Product used for unknown indication
     Dosage: UNK
     Route: 065
  4. MYCOPHENOLATE MOFETIL [Concomitant]
     Active Substance: MYCOPHENOLATE MOFETIL
     Indication: Product used for unknown indication
     Dosage: UNK
     Route: 065
  5. PREDNISOLONE [Concomitant]
     Active Substance: PREDNISOLONE
     Indication: Product used for unknown indication
     Dosage: UNK
     Route: 065

REACTIONS (3)
  - Ascites [Recovering/Resolving]
  - Hypoalbuminaemia [Recovering/Resolving]
  - Proteinuria [Recovering/Resolving]
